FAERS Safety Report 14920401 (Version 1)
Quarter: 2018Q2

REPORT INFORMATION
  Report Type: Report from Study
  Country: US (occurrence: US)
  Receive Date: 20180521
  Receipt Date: 20180521
  Transmission Date: 20180711
  Serious: Yes (Other)
  Sender: FDA-Public Use
  Company Number: US-BAYER-2018-079706

PATIENT
  Age: 45 Year
  Sex: Female

DRUGS (2)
  1. STIVARGA [Suspect]
     Active Substance: REGORAFENIB
     Indication: COLORECTAL CANCER METASTATIC
     Dosage: 80 MG DAILY
     Route: 048
     Dates: start: 20180510
  2. STIVARGA [Suspect]
     Active Substance: REGORAFENIB
     Indication: COLORECTAL CANCER METASTATIC
     Dosage: 80 MG, QD
     Route: 048
     Dates: start: 20180416, end: 20180509

REACTIONS (19)
  - Skin disorder [None]
  - Abdominal pain upper [None]
  - Blood pressure increased [Recovering/Resolving]
  - Pain [Not Recovered/Not Resolved]
  - Dry skin [None]
  - Glossodynia [None]
  - Oral pain [None]
  - Rash [Recovering/Resolving]
  - Dysphonia [None]
  - Diarrhoea [Recovering/Resolving]
  - Myalgia [None]
  - Fatigue [Not Recovered/Not Resolved]
  - Off label use [None]
  - Hot flush [None]
  - Poor quality sleep [None]
  - Dehydration [None]
  - Arthralgia [None]
  - Stomatitis [Recovering/Resolving]
  - Vomiting [None]

NARRATIVE: CASE EVENT DATE: 201804
